FAERS Safety Report 13355059 (Version 3)
Quarter: 2017Q2

REPORT INFORMATION
  Report Type: Spontaneous
  Country: CN (occurrence: CN)
  Receive Date: 20170321
  Receipt Date: 20170411
  Transmission Date: 20170830
  Serious: Yes (Life-Threatening, Hospitalization, Other)
  Sender: FDA-Public Use
  Company Number: CN-PFIZER INC-2017116503

PATIENT
  Age: 39 Year
  Sex: Female

DRUGS (9)
  1. DOXORUBICIN HCL [Suspect]
     Active Substance: DOXORUBICIN HYDROCHLORIDE
     Indication: PLASMA CELL MYELOMA
     Dosage: 60 MG, CYCLIC DAY 1 (FOR 1 CYCLE)
     Dates: start: 200612
  2. DEXAMETHASONE. [Suspect]
     Active Substance: DEXAMETHASONE
     Indication: PLASMA CELL MYELOMA
     Dosage: 10 MG, CYCLIC (DAYS 1 TO 4)
     Dates: start: 200612
  3. VINCRISTINE [Suspect]
     Active Substance: VINCRISTINE
     Indication: PLASMA CELL MYELOMA
     Dosage: 2 MG, CYCLIC DAY 1 (FOR 1 CYCLE)
     Dates: start: 200612
  4. THALIDOMIDE [Suspect]
     Active Substance: THALIDOMIDE
     Indication: PLASMA CELL MYELOMA
     Dosage: 200 MG, DAILY
     Dates: start: 200801
  5. VALSARTAN. [Concomitant]
     Active Substance: VALSARTAN
     Indication: HYPERTENSION
     Dosage: 80 MG, DAILY
     Dates: start: 201303
  6. DEXAMETHASONE. [Suspect]
     Active Substance: DEXAMETHASONE
     Dosage: 20 MG, CYCLIC (DAYS 1 TO 4)
     Dates: start: 200704
  7. BORTEZOMIB [Suspect]
     Active Substance: BORTEZOMIB
     Indication: PLASMA CELL MYELOMA
     Dosage: 1.9 MG, CYCLIC (DAYS 1, 4, 8 AND 11)
     Dates: start: 200704
  8. THALIDOMIDE [Suspect]
     Active Substance: THALIDOMIDE
     Dosage: 150 MG, DAILY
     Dates: start: 200801
  9. AMLODIPINE [Concomitant]
     Active Substance: AMLODIPINE BESYLATE
     Indication: HYPERTENSION
     Dosage: 5 MG, DAILY
     Dates: start: 201303

REACTIONS (2)
  - Second primary malignancy [Unknown]
  - Acute lymphocytic leukaemia [Unknown]
